FAERS Safety Report 8903092 (Version 2)
Quarter: 2013Q1

REPORT INFORMATION
  Report Type: Spontaneous
  Country: DE (occurrence: DE)
  Receive Date: 20121112
  Receipt Date: 20130226
  Transmission Date: 20140127
  Serious: Yes (Other)
  Sender: FDA-Public Use
  Company Number: DE-ELI_LILLY_AND_COMPANY-DE201210009781

PATIENT
  Age: 51 Year
  Sex: Male

DRUGS (10)
  1. CYMBALTA [Suspect]
     Indication: DEPRESSION
     Dosage: 90 MG, UNKNOWN
     Route: 048
     Dates: start: 20121018
  2. CYMBALTA [Suspect]
     Dosage: 60 MG, UNKNOWN
     Dates: end: 20121101
  3. A.S.A. [Concomitant]
     Dosage: 100 MG, UNKNOWN
  4. BISOPROLOL [Concomitant]
     Dosage: 5 MG, UNKNOWN
  5. INSULINE [Concomitant]
  6. SIMVASTATIN [Concomitant]
     Dosage: 40 DF, UNKNOWN
  7. RAMIPRIL [Concomitant]
     Dosage: 2.5 MG, UNKNOWN
  8. GLIMEPIRID [Concomitant]
     Dosage: 4 MG, UNKNOWN
  9. VILDAGLIPTIN [Concomitant]
     Dosage: UNK
  10. METFORMIN [Concomitant]
     Dosage: 2 DF, QD

REACTIONS (1)
  - Electrocardiogram QT prolonged [Recovered/Resolved]
